FAERS Safety Report 20597293 (Version 2)
Quarter: 2022Q1

REPORT INFORMATION
  Report Type: Spontaneous
  Country: GB (occurrence: GB)
  Receive Date: 20220315
  Receipt Date: 20220322
  Transmission Date: 20220423
  Serious: Yes (Disabling, Other)
  Sender: FDA-Public Use
  Company Number: GB-MHRA-MED-202203021156418560-1MUOK

PATIENT
  Age: 30 Year
  Sex: Female

DRUGS (1)
  1. HYDROCORTISONE SODIUM SUCCINATE [Suspect]
     Active Substance: HYDROCORTISONE SODIUM SUCCINATE
     Indication: Eczema
     Dosage: UNK
     Dates: start: 19920613, end: 20200516

REACTIONS (3)
  - Topical steroid withdrawal reaction [Not Recovered/Not Resolved]
  - Dependence [Unknown]
  - Incorrect product administration duration [Unknown]
